FAERS Safety Report 22954258 (Version 2)
Quarter: 2024Q3

REPORT INFORMATION
  Report Type: Report from Study
  Country: CA (occurrence: CA)
  Receive Date: 20230918
  Receipt Date: 20240912
  Transmission Date: 20241017
  Serious: Yes (Hospitalization)
  Sender: ROCHE
  Company Number: CA-ROCHE-2879226

PATIENT
  Sex: Female

DRUGS (5)
  1. OCREVUS [Suspect]
     Active Substance: OCRELIZUMAB
     Indication: Relapsing-remitting multiple sclerosis
     Dosage: 300 MG AT DAY 0 AND 14, THEN 600 MG EVERY 6 MONTH
     Route: 042
     Dates: start: 20180919
  2. MODAFINIL [Concomitant]
     Active Substance: MODAFINIL
  3. COPAXONE [Concomitant]
     Active Substance: GLATIRAMER ACETATE
  4. AUBAGIO [Concomitant]
     Active Substance: TERIFLUNOMIDE
  5. GILENYA [Concomitant]
     Active Substance: FINGOLIMOD HYDROCHLORIDE

REACTIONS (3)
  - Urinary tract infection [Recovered/Resolved]
  - Anal incontinence [Unknown]
  - COVID-19 [Recovered/Resolved]
